FAERS Safety Report 9129465 (Version 1)
Quarter: 2013Q1

REPORT INFORMATION
  Report Type: Spontaneous
  Country: ES (occurrence: ES)
  Receive Date: 20130228
  Receipt Date: 20130228
  Transmission Date: 20140127
  Serious: Yes (Congenital Anomaly)
  Sender: FDA-Public Use
  Company Number: ES-GLAXOSMITHKLINE-B0806520B

PATIENT
  Sex: 0

DRUGS (4)
  1. MALARONE [Suspect]
     Indication: PROPHYLAXIS
     Route: 064
     Dates: start: 20120520, end: 20120606
  2. VACCINES [Suspect]
     Indication: PROPHYLAXIS
     Route: 064
     Dates: start: 20120419
  3. YELLOW FEVER VACCINE [Suspect]
     Indication: PROPHYLAXIS
     Route: 064
     Dates: start: 20120419
  4. TYPHUS VACCINE [Suspect]
     Indication: PROPHYLAXIS
     Route: 064
     Dates: start: 20120419

REACTIONS (3)
  - Heart disease congenital [Unknown]
  - Foetal exposure during pregnancy [Unknown]
  - Maternal drugs affecting foetus [None]
